FAERS Safety Report 7240594-4 (Version None)
Quarter: 2011Q1

REPORT INFORMATION
  Report Type: 
  Country: None (occurrence: None)
  Receive Date: 20110118
  Receipt Date: 20110107
  Transmission Date: 20110831
  Serious: Yes (Death, Hospitalization)
  Sender: FDA-Public Use
  Company Number: 2011AM003647

PATIENT
  Age: 85 Year
  Sex: Female

DRUGS (4)
  1. LEVEMIR [Concomitant]
  2. SYMLIN [Suspect]
     Indication: TYPE 2 DIABETES MELLITUS
     Dosage: 60 MG BID, SC; 30 MCG, BID, SC
     Route: 058
     Dates: start: 20100901, end: 20101201
  3. SYMLIN [Suspect]
     Indication: TYPE 2 DIABETES MELLITUS
     Dosage: 60 MG BID, SC; 30 MCG, BID, SC
     Route: 058
     Dates: start: 20100917, end: 20100901
  4. NOVOLIN 70/30 [Concomitant]

REACTIONS (3)
  - CEREBRAL HAEMORRHAGE [None]
  - LOSS OF CONSCIOUSNESS [None]
  - BLOOD GLUCOSE DECREASED [None]
